FAERS Safety Report 16252968 (Version 4)
Quarter: 2019Q2

REPORT INFORMATION
  Report Type: Spontaneous
  Country: JP (occurrence: JP)
  Receive Date: 20190429
  Receipt Date: 20190617
  Transmission Date: 20190711
  Serious: Yes (Hospitalization, Other)
  Sender: FDA-Public Use
  Company Number: JP-AMGEN-JPNSP2019066389

PATIENT
  Age: 93 Year
  Sex: Female

DRUGS (19)
  1. LANSOPRAZOLE. [Concomitant]
     Active Substance: LANSOPRAZOLE
     Dosage: 15 MILLIGRAM, QD
  2. ETIZOLAM [Concomitant]
     Active Substance: ETIZOLAM
     Dosage: 1 MILLIGRAM, QD
  3. LORATADINE. [Concomitant]
     Active Substance: LORATADINE
     Dosage: 10 MILLIGRAM, QD
  4. VASOLATOR [Concomitant]
     Dosage: 27 MILLIGRAM, QD
  5. LYRICA [Concomitant]
     Active Substance: PREGABALIN
     Dosage: 300 MILLIGRAM, QD
  6. SHOFUSAN [Concomitant]
     Dosage: 7.5 MILLIGRAM, QD
  7. MAGMITT [Concomitant]
     Active Substance: MAGNESIUM OXIDE
     Dosage: 1320 MILLIGRAM, QD
  8. EVENITY [Suspect]
     Active Substance: ROMOSOZUMAB-AQQG
     Indication: OSTEOPOROSIS
     Dosage: 210 MILLIGRAM
     Route: 058
     Dates: start: 20190306, end: 20190403
  9. OLOPATADINE HYDROCHLORIDE. [Concomitant]
     Active Substance: OLOPATADINE HYDROCHLORIDE
     Dosage: 10 MILLIGRAM, QD
  10. BILANOA [Concomitant]
     Active Substance: BILASTINE
     Dosage: 20 MILLIGRAM, QD
  11. MYSER [DIFLUPREDNATE] [Concomitant]
     Dosage: UNK
  12. HIRUDOID [Concomitant]
     Active Substance: GLYCOSAMINOGLYCANS
     Dosage: UNK
  13. CLEMASTINE [Concomitant]
     Active Substance: CLEMASTINE
     Dosage: 2 MILLIGRAM, QD
  14. ALFACALCIDOL [Concomitant]
     Active Substance: ALFACALCIDOL
     Dosage: 0.5 MICROGRAM, QD
  15. FORTEO [Concomitant]
     Active Substance: TERIPARATIDE
     Dosage: UNK
     Dates: start: 20181231
  16. TRAMCET [Concomitant]
     Active Substance: ACETAMINOPHEN\TRAMADOL
     Dosage: 4 DOSAGE FORM, QD
  17. NIZORAL [Concomitant]
     Active Substance: KETOCONAZOLE
  18. AMLODIPINE [AMLODIPINE BESILATE] [Concomitant]
     Active Substance: AMLODIPINE BESYLATE
     Dosage: 5 MILLIGRAM, QD
  19. NEOMALLERMIN [Concomitant]
     Active Substance: DEXCHLORPHENIRAMINE MALEATE
     Dosage: 12 MILLIGRAM, QD

REACTIONS (2)
  - Eosinophil count increased [Recovering/Resolving]
  - Erythema multiforme [Recovering/Resolving]

NARRATIVE: CASE EVENT DATE: 201903
